FAERS Safety Report 26190614 (Version 1)
Quarter: 2025Q4

REPORT INFORMATION
  Report Type: Spontaneous
  Country: US (occurrence: US)
  Receive Date: 20251223
  Receipt Date: 20251223
  Transmission Date: 20260118
  Serious: Yes (Other)
  Sender: GLAXOSMITHKLINE
  Company Number: US-GSK-US2025GSK163657

PATIENT

DRUGS (1)
  1. LAMICTAL [Suspect]
     Active Substance: LAMOTRIGINE
     Dosage: TITRATED ABOVE 150 MG QD

REACTIONS (12)
  - Substance use disorder [Recovered/Resolved]
  - Mania [Unknown]
  - Hypomania [Unknown]
  - Affect lability [Unknown]
  - Irritability [Unknown]
  - Depression [Unknown]
  - Anxiety [Unknown]
  - Compulsive sexual behaviour [Unknown]
  - Flat affect [Unknown]
  - Lack of empathy [Unknown]
  - Cognitive disorder [Unknown]
  - Personality change [Unknown]
